FAERS Safety Report 15366039 (Version 1)
Quarter: 2018Q3

REPORT INFORMATION
  Report Type: Spontaneous
  Country: US (occurrence: US)
  Receive Date: 20180910
  Receipt Date: 20180910
  Transmission Date: 20181010
  Serious: No
  Sender: FDA-Public Use
  Company Number: US-009507513-1809USA000589

PATIENT
  Age: 12 Year
  Sex: Male

DRUGS (1)
  1. DULERA [Suspect]
     Active Substance: FORMOTEROL FUMARATE DIHYDRATE\MOMETASONE FUROATE
     Indication: ASTHMA
     Dosage: 2 PUFFS TAKEN TWICE DAILY
     Route: 048
     Dates: start: 201805, end: 20180829

REACTIONS (2)
  - Oropharyngeal pain [Unknown]
  - Headache [Unknown]
